FAERS Safety Report 16259846 (Version 1)
Quarter: 2019Q2

REPORT INFORMATION
  Report Type: Spontaneous
  Country: GB (occurrence: GB)
  Receive Date: 20190501
  Receipt Date: 20190501
  Transmission Date: 20190711
  Serious: Yes (Disabling)
  Sender: FDA-Public Use
  Company Number: GB-MYLANLABS-2019M1040757

PATIENT
  Age: 56 Year
  Sex: Female
  Weight: 76 kg

DRUGS (4)
  1. BISOPROLOL [Suspect]
     Active Substance: BISOPROLOL
     Indication: PRODUCT USED FOR UNKNOWN INDICATION
     Dosage: 1.25 MILLIGRAM, QD
     Dates: start: 20181008
  2. IBUPROFEN. [Concomitant]
     Active Substance: IBUPROFEN
     Dosage: 3 DOSAGE FORM, QD
     Dates: start: 20181008, end: 20181105
  3. METOCLOPRAMIDE. [Concomitant]
     Active Substance: METOCLOPRAMIDE
     Dosage: 3 DOSAGE FORM, QD
     Dates: start: 20181008, end: 20181009
  4. ELETRIPTAN. [Concomitant]
     Active Substance: ELETRIPTAN
     Dosage: 1 DOSAGE FORM (AS DIRECTED)
     Dates: start: 20171103

REACTIONS (5)
  - Decreased vibratory sense [Unknown]
  - Paraesthesia [Unknown]
  - Condition aggravated [Not Recovered/Not Resolved]
  - Hypoaesthesia [Not Recovered/Not Resolved]
  - Hypersensitivity [Unknown]
